FAERS Safety Report 14007204 (Version 1)
Quarter: 2017Q3

REPORT INFORMATION
  Report Type: Spontaneous
  Country: US (occurrence: US)
  Receive Date: 20170924
  Receipt Date: 20170924
  Transmission Date: 20171128
  Serious: Yes (Disabling)
  Sender: FDA-Public Use
  Company Number: None

PATIENT
  Sex: Female
  Weight: 76.95 kg

DRUGS (18)
  1. EZETIMIBE. [Concomitant]
     Active Substance: EZETIMIBE
  2. CALCIUM CITRATE [Concomitant]
     Active Substance: CALCIUM CITRATE
  3. TUMERIC [Concomitant]
     Active Substance: HERBALS\TURMERIC
  4. MAGNESIUM [Concomitant]
     Active Substance: MAGNESIUM
  5. LEVOXYL [Concomitant]
     Active Substance: LEVOTHYROXINE SODIUM
  6. OCUSIGHT [Concomitant]
  7. VITAMIN D3 [Concomitant]
     Active Substance: CHOLECALCIFEROL
  8. ONE A DAY MULTI VITAMIN [Concomitant]
  9. BIO X4 [Concomitant]
  10. FORTEO [Suspect]
     Active Substance: TERIPARATIDE
     Indication: BONE LOSS
     Dosage: ?          QUANTITY:1 INJECTION(S);?
     Route: 058
  11. ZINC. [Concomitant]
     Active Substance: ZINC
  12. RED YEAST RICE [Concomitant]
     Active Substance: DIETARY SUPPLEMENT
  13. FISH OIL [Concomitant]
     Active Substance: FISH OIL
  14. OSTEO BI-FLEX [Concomitant]
     Active Substance: CHONDROITIN SULFATE A\GLUCOSAMINE
  15. COQ10 [Concomitant]
     Active Substance: UBIDECARENONE
  16. TRIPLE ACTION JOINT HEALTH [Concomitant]
  17. KRILL OIL [Concomitant]
     Active Substance: DIETARY SUPPLEMENT
  18. HDA-500 [Concomitant]

REACTIONS (1)
  - Weight increased [None]

NARRATIVE: CASE EVENT DATE: 20170924
